FAERS Safety Report 17009254 (Version 1)
Quarter: 2019Q4

REPORT INFORMATION
  Report Type: Spontaneous
  Country: US (occurrence: US)
  Receive Date: 20191108
  Receipt Date: 20191108
  Transmission Date: 20200122
  Serious: Yes (Death, Other)
  Sender: FDA-Public Use
  Company Number: US-HIKMA PHARMACEUTICALS USA INC.-US-H14001-19-05594

PATIENT
  Sex: Female

DRUGS (1)
  1. HYDROMORPHONE [Suspect]
     Active Substance: HYDROMORPHONE
     Indication: PRODUCT USED FOR UNKNOWN INDICATION
     Route: 065

REACTIONS (5)
  - Hallucination [Unknown]
  - Unresponsive to stimuli [Unknown]
  - Death [Fatal]
  - Dyspnoea [Unknown]
  - Influenza like illness [Unknown]
